FAERS Safety Report 5780887-0 (Version None)
Quarter: 2008Q2

REPORT INFORMATION
  Report Type: 
  Country: None (occurrence: None)
  Receive Date: 20080620
  Receipt Date: 20080609
  Transmission Date: 20081010
  Serious: Yes (Life-Threatening, Hospitalization, Other)
  Sender: FDA-Public Use
  Company Number: JP-PFIZER INC-2008036874

PATIENT
  Sex: Female
  Weight: 42.3 kg

DRUGS (8)
  1. SALAZOPYRIN [Suspect]
     Indication: COLITIS
     Route: 048
     Dates: start: 20080307, end: 20080422
  2. NATRIX [Concomitant]
     Route: 048
     Dates: start: 20080229, end: 20080422
  3. LAC B [Concomitant]
     Route: 048
  4. MAGNESIUM OXIDE [Concomitant]
     Route: 048
     Dates: start: 20080325, end: 20080422
  5. ALOSENN [Concomitant]
     Route: 048
  6. LANSOPRAZOLE [Concomitant]
     Route: 048
  7. MERISLON [Concomitant]
     Route: 048
     Dates: start: 20080408, end: 20080422
  8. CEPHADOL [Concomitant]
     Route: 048
     Dates: start: 20080408, end: 20080422

REACTIONS (12)
  - ALTERED STATE OF CONSCIOUSNESS [None]
  - ANURIA [None]
  - BEDRIDDEN [None]
  - BLOOD GLUCOSE ABNORMAL [None]
  - CSF PROTEIN [None]
  - DECREASED APPETITE [None]
  - DYSSTASIA [None]
  - HEPATIC FUNCTION ABNORMAL [None]
  - MENTAL IMPAIRMENT [None]
  - NIGHTMARE [None]
  - ORAL DISORDER [None]
  - URINE OUTPUT [None]
